FAERS Safety Report 20853443 (Version 2)
Quarter: 2022Q3

REPORT INFORMATION
  Report Type: Spontaneous
  Country: CA (occurrence: CA)
  Receive Date: 20220520
  Receipt Date: 20220824
  Transmission Date: 20221027
  Serious: Yes (Hospitalization)
  Sender: FDA-Public Use
  Company Number: CA-SA-SAC20220518001684

PATIENT
  Age: 76 Year
  Sex: Male
  Weight: 91.1 kg

DRUGS (19)
  1. LOVENOX [Suspect]
     Active Substance: ENOXAPARIN SODIUM
     Dosage: 80MG/0.8ML
     Route: 058
     Dates: start: 20210812, end: 20210831
  2. AMLODIPINE [Concomitant]
     Active Substance: AMLODIPINE BESYLATE
  3. ATORVASTATIN [Concomitant]
     Active Substance: ATORVASTATIN
  4. DEXLANSOPRAZOLE [Concomitant]
     Active Substance: DEXLANSOPRAZOLE
  5. ENTECAVIR [Concomitant]
     Active Substance: ENTECAVIR
  6. VALACYCLOVIR [Concomitant]
     Active Substance: VALACYCLOVIR HYDROCHLORIDE
  7. PENTAMIDINE [Concomitant]
     Active Substance: PENTAMIDINE
  8. TOCILIZUMAB [Concomitant]
     Active Substance: TOCILIZUMAB
  9. LINAGLIPTIN [Concomitant]
     Active Substance: LINAGLIPTIN
  10. GLICLAZIDE [Concomitant]
     Active Substance: GLICLAZIDE
  11. METFORMIN [Concomitant]
     Active Substance: METFORMIN HYDROCHLORIDE
  12. LORAZEPAM [Concomitant]
     Active Substance: LORAZEPAM
  13. POLYETHYLENE GLYCOLS [Concomitant]
     Active Substance: POLYETHYLENE GLYCOLS
  14. ACETAMINOPHEN [Concomitant]
     Active Substance: ACETAMINOPHEN
  15. TAMSULOSIN [Concomitant]
     Active Substance: TAMSULOSIN
  16. ACTEMRA [Concomitant]
     Active Substance: TOCILIZUMAB
     Route: 058
  17. LINAGLIPTIN [Concomitant]
     Active Substance: LINAGLIPTIN
  18. DEXILANT [Concomitant]
     Active Substance: DEXLANSOPRAZOLE
  19. INSULIN NOS [Concomitant]
     Active Substance: INSULIN NOS

REACTIONS (1)
  - Haematuria [Recovered/Resolved]

NARRATIVE: CASE EVENT DATE: 20210830
